FAERS Safety Report 17449340 (Version 2)
Quarter: 2025Q2

REPORT INFORMATION
  Report Type: Spontaneous
  Country: FR (occurrence: FR)
  Receive Date: 20200224
  Receipt Date: 20250620
  Transmission Date: 20250717
  Serious: Yes (Hospitalization, Other)
  Sender: AUROBINDO
  Company Number: FR-GLAXOSMITHKLINE-FR2020GSK014460

PATIENT
  Age: 60 Year
  Sex: Female

DRUGS (11)
  1. ACETAMINOPHEN [Suspect]
     Active Substance: ACETAMINOPHEN
     Indication: Thromboangiitis obliterans
     Route: 065
  2. ASPIRIN [Suspect]
     Active Substance: ASPIRIN
     Indication: Thrombosis prophylaxis
     Dosage: 75 MILLIGRAM, ONCE A DAY
     Route: 065
  3. ASPIRIN [Suspect]
     Active Substance: ASPIRIN
     Route: 065
  4. ASPIRIN [Suspect]
     Active Substance: ASPIRIN
     Route: 065
  5. ASPIRIN [Suspect]
     Active Substance: ASPIRIN
     Dosage: 75 MILLIGRAM, ONCE A DAY
     Route: 065
  6. TICAGRELOR [Suspect]
     Active Substance: TICAGRELOR
     Indication: Thrombosis prophylaxis
     Dosage: 90 MILLIGRAM, TWO TIMES A DAY
     Route: 065
  7. TICAGRELOR [Suspect]
     Active Substance: TICAGRELOR
     Dosage: 180 MILLIGRAM, ONCE A DAY (90 MG, BID)
     Route: 065
  8. TICAGRELOR [Suspect]
     Active Substance: TICAGRELOR
     Dosage: 180 MILLIGRAM, ONCE A DAY (90 MG, BID)
     Route: 065
  9. CANGRELOR [Suspect]
     Active Substance: CANGRELOR
     Indication: Thrombosis prophylaxis
     Route: 065
  10. INTEGRILIN [Suspect]
     Active Substance: EPTIFIBATIDE
     Indication: Thrombosis prophylaxis
     Route: 042
  11. HEPARIN [Concomitant]
     Active Substance: HEPARIN SODIUM
     Indication: Product used for unknown indication
     Route: 065

REACTIONS (4)
  - Intracranial aneurysm [Unknown]
  - Headache [Unknown]
  - Drug ineffective [Unknown]
  - Drug abuse [Unknown]
